FAERS Safety Report 11803966 (Version 2)
Quarter: 2016Q1

REPORT INFORMATION
  Report Type: Spontaneous
  Country: US (occurrence: US)
  Receive Date: 20151204
  Receipt Date: 20160120
  Transmission Date: 20160525
  Serious: Yes (Other)
  Sender: FDA-Public Use
  Company Number: US-ASTRAZENECA-2015SF18841

PATIENT
  Sex: Female
  Weight: 68.9 kg

DRUGS (1)
  1. SYMBICORT [Suspect]
     Active Substance: BUDESONIDE\FORMOTEROL FUMARATE DIHYDRATE
     Indication: BRONCHITIS
     Dosage: 160/4.5MCG, 2 PUFFS DAILY
     Route: 055
     Dates: start: 2014

REACTIONS (5)
  - Bronchitis [Unknown]
  - Gastrooesophageal reflux disease [Unknown]
  - Device failure [Unknown]
  - Drug dose omission [Unknown]
  - Drug prescribing error [Unknown]
